FAERS Safety Report 17721448 (Version 2)
Quarter: 2020Q4

REPORT INFORMATION
  Report Type: Spontaneous
  Country: US (occurrence: US)
  Receive Date: 20200429
  Receipt Date: 20201120
  Transmission Date: 20210113
  Serious: Yes (Other)
  Sender: FDA-Public Use
  Company Number: US-PERRIGO-20US005809

PATIENT
  Age: 55 Year
  Sex: Male

DRUGS (2)
  1. PRILOSEC [Suspect]
     Active Substance: OMEPRAZOLE MAGNESIUM
     Indication: GASTROOESOPHAGEAL REFLUX DISEASE
     Dosage: UNKNOWN, UNKNOWN
     Route: 048
     Dates: start: 200601, end: 201601
  2. PREVACID 24 HR [Suspect]
     Active Substance: LANSOPRAZOLE
     Indication: GASTROOESOPHAGEAL REFLUX DISEASE
     Dosage: UNK UNK, QD
     Route: 065
     Dates: start: 2009, end: 2013

REACTIONS (8)
  - Nephrolithiasis [Unknown]
  - Tubulointerstitial nephritis [Not Recovered/Not Resolved]
  - Renal impairment [Unknown]
  - Acute kidney injury [Not Recovered/Not Resolved]
  - Chronic kidney disease [Not Recovered/Not Resolved]
  - End stage renal disease [Not Recovered/Not Resolved]
  - Renal hypoplasia [Not Recovered/Not Resolved]
  - Renal artery stenosis [Not Recovered/Not Resolved]

NARRATIVE: CASE EVENT DATE: 20150918
